FAERS Safety Report 9128213 (Version 3)
Quarter: 2013Q3

REPORT INFORMATION
  Report Type: Spontaneous
  Country: US (occurrence: US)
  Receive Date: 20130228
  Receipt Date: 20130709
  Transmission Date: 20140515
  Serious: Yes (Hospitalization, Other)
  Sender: FDA-Public Use
  Company Number: US-PFIZER INC-2013066420

PATIENT
  Age: 56 Year
  Sex: Male
  Weight: 80 kg

DRUGS (3)
  1. BENEFIX [Suspect]
     Indication: FACTOR IX DEFICIENCY
     Dosage: 120 IU/KG, WEEKLY
  2. BENEFIX [Suspect]
     Dosage: 60 IU/KG, WEEKLY
  3. BENEFIX [Suspect]
     Dosage: 60 IU/KG, SINGLE

REACTIONS (4)
  - Haemorrhage [Unknown]
  - Disease complication [Unknown]
  - Joint injury [Unknown]
  - Off label use [Unknown]
